FAERS Safety Report 5408397-0 (Version None)
Quarter: 2007Q3

REPORT INFORMATION
  Report Type: 
  Country: None (occurrence: None)
  Receive Date: 20070806
  Receipt Date: 20070720
  Transmission Date: 20080115
  Serious: No
  Sender: FDA-Public Use
  Company Number: DSA_30331_2007

PATIENT
  Age: 47 Year
  Sex: Male

DRUGS (3)
  1. HERBESSER (HERBESSER R TANABE - DILTIAZEM HYDROCHLORIDE) NOT SPECIFIED [Suspect]
  2. CARVEDILOL [Suspect]
     Dosage: DF ORAL
     Route: 048
  3. PILSICAINIDE  HYDROCHLORIDE (SUNRYTHM-PILSICAINIDE HYDROCHLORIDE) [Suspect]
     Indication: DRUG USE FOR UNKNOWN INDICATION
     Dosage: DF ORAL
     Route: 048

REACTIONS (3)
  - BACK PAIN [None]
  - HEART RATE DECREASED [None]
  - SHOCK [None]
